FAERS Safety Report 5007003-7 (Version None)
Quarter: 2006Q1

REPORT INFORMATION
  Report Type: 
  Country: None (occurrence: None)
  Receive Date: 20060320
  Receipt Date: 20050914
  Transmission Date: 20060701
  Serious: Yes (Other)
  Sender: FDA-Public Use
  Company Number: 2005-09-0939

PATIENT
  Age: 50 Year
  Sex: Female

DRUGS (5)
  1. PEG-INTRON [Suspect]
     Indication: HEPATITIS C
     Dosage: SEE IMAGE
     Dates: start: 20050801, end: 20050901
  2. PEG-INTRON [Suspect]
     Indication: HEPATITIS C
     Dosage: SEE IMAGE
     Dates: start: 20050901
  3. REBETOL [Suspect]
     Indication: HEPATITIS C
     Dosage: ORAL
     Route: 048
     Dates: start: 20050801
  4. COREG [Suspect]
     Indication: HYPERTENSION
  5. HYDROCHLOROTHIAZIDE [Suspect]
     Indication: HYPERTENSION

REACTIONS (7)
  - ASTHENIA [None]
  - HYPOTENSION [None]
  - LETHARGY [None]
  - OVERDOSE [None]
  - PULMONARY CONGESTION [None]
  - SYNCOPE [None]
  - VISUAL DISTURBANCE [None]
